FAERS Safety Report 8164245-X (Version None)
Quarter: 2012Q1

REPORT INFORMATION
  Report Type: 
  Country: None (occurrence: None)
  Receive Date: 20120224
  Receipt Date: 20111111
  Transmission Date: 20120608
  Serious: No
  Sender: FDA-Public Use
  Company Number: US-ASTRAZENECA-2011SE67618

PATIENT
  Sex: Female

DRUGS (1)
  1. VIMOVO [Suspect]
     Indication: ROTATOR CUFF SYNDROME
     Dosage: 500MG/20 MG
     Route: 048

REACTIONS (2)
  - OFF LABEL USE [None]
  - ARTHRITIS [None]
